FAERS Safety Report 19845015 (Version 1)
Quarter: 2021Q3

REPORT INFORMATION
  Report Type: Report from Study
  Country: AR (occurrence: AR)
  Receive Date: 20210916
  Receipt Date: 20210916
  Transmission Date: 20211014
  Serious: Yes (Hospitalization)
  Sender: FDA-Public Use
  Company Number: AR-BRISTOL-MYERS SQUIBB COMPANY-BMS-2021-092022

PATIENT
  Age: 64 Year
  Sex: Male
  Weight: 123 kg

DRUGS (8)
  1. PARACETAMOL [Concomitant]
     Active Substance: ACETAMINOPHEN
     Indication: PYREXIA
     Dosage: 1000 MILLIGRAM
     Route: 048
     Dates: start: 20210831, end: 20210831
  2. NIVOLUMAB [Suspect]
     Active Substance: NIVOLUMAB
     Indication: BLADDER CANCER
     Dosage: 100 MILLILITER
     Route: 042
     Dates: start: 20210219
  3. PREDNISONE. [Concomitant]
     Active Substance: PREDNISONE
     Indication: PRODUCT USED FOR UNKNOWN INDICATION
     Dosage: 16 MILLIGRAM
     Route: 048
     Dates: start: 20210726, end: 20210818
  4. TRIMETHOPRIM. [Concomitant]
     Active Substance: TRIMETHOPRIM
     Indication: URINARY TRACT INFECTION
     Dosage: 160 MILLIGRAM
     Route: 048
     Dates: start: 20210813
  5. SULFAMETHOXAZOLE [Concomitant]
     Active Substance: SULFAMETHOXAZOLE
     Indication: URINARY TRACT INFECTION
     Dosage: 800 MILLIGRAM
     Route: 048
     Dates: start: 20210813
  6. BCG VACCINE [Suspect]
     Active Substance: BCG VACCINE
     Indication: BLADDER CANCER
     Dosage: 120 MILLIGRAM
     Route: 043
     Dates: start: 20210225
  7. PREDNISONE. [Concomitant]
     Active Substance: PREDNISONE
     Dosage: 12 MILLIGRAM
     Route: 048
     Dates: start: 20210820
  8. PREDNISONE. [Concomitant]
     Active Substance: PREDNISONE
     Dosage: 8 MILLIGRAM
     Route: 048
     Dates: start: 20210819, end: 20210819

REACTIONS (1)
  - Urinary tract infection [Recovering/Resolving]

NARRATIVE: CASE EVENT DATE: 20210901
